FAERS Safety Report 7910890-3 (Version None)
Quarter: 2011Q4

REPORT INFORMATION
  Report Type: 
  Country: None (occurrence: None)
  Receive Date: 20111114
  Receipt Date: 20111104
  Transmission Date: 20120403
  Serious: No
  Sender: FDA-Public Use
  Company Number: US-BIOGENIDEC-2011BI014398

PATIENT
  Age: 62 Year
  Sex: Female

DRUGS (3)
  1. TYSABRI [Suspect]
     Route: 042
     Dates: start: 20111006
  2. BENADRYL [Concomitant]
     Indication: PREMEDICATION
  3. TYSABRI [Suspect]
     Indication: MULTIPLE SCLEROSIS
     Route: 042
     Dates: start: 20110309

REACTIONS (8)
  - DIZZINESS [None]
  - MUSCLE TIGHTNESS [None]
  - TOOTH DISCOLOURATION [None]
  - PRURITUS [None]
  - URINARY TRACT INFECTION [None]
  - WHEEZING [None]
  - ARTHRALGIA [None]
  - ENAMEL ANOMALY [None]
